FAERS Safety Report 14631150 (Version 1)
Quarter: 2018Q1

REPORT INFORMATION
  Report Type: Report from Study
  Country: ES (occurrence: ES)
  Receive Date: 20180313
  Receipt Date: 20180313
  Transmission Date: 20180509
  Serious: Yes (Other)
  Sender: FDA-Public Use
  Company Number: ES-PFIZER INC-2018096612

PATIENT
  Age: 3 Year
  Sex: Male

DRUGS (6)
  1. SEPTRIN PAEDIATRIC [Concomitant]
     Active Substance: SULFAMETHOXAZOLE\TRIMETHOPRIM
     Indication: OPPORTUNISTIC INFECTION PROPHYLAXIS
     Dosage: 5 ML, 2X/DAY (EVERY 12 HOURS)
     Route: 048
     Dates: start: 20170223
  2. VINCRISTINE SULFATE. [Suspect]
     Active Substance: VINCRISTINE SULFATE
     Indication: ACUTE LYMPHOCYTIC LEUKAEMIA
     Dosage: 0.97 MG, WEEKLY
     Route: 042
     Dates: start: 20170825, end: 20170901
  3. DEXAMETHASONE. [Suspect]
     Active Substance: DEXAMETHASONE
     Indication: ACUTE LYMPHOCYTIC LEUKAEMIA
     Dosage: 6 MG, 1X/DAY
     Route: 048
     Dates: start: 20170811, end: 20170901
  4. ZOVIRAX [Concomitant]
     Active Substance: ACYCLOVIR
     Indication: OPPORTUNISTIC INFECTION PROPHYLAXIS
     Dosage: 2 ML, 3X/DAY (EVERY 8 HOURS)
     Route: 048
     Dates: start: 20170223
  5. DOXORUBICIN HCL [Suspect]
     Active Substance: DOXORUBICIN HYDROCHLORIDE
     Indication: ACUTE LYMPHOCYTIC LEUKAEMIA
     Dosage: 19.5 MG, WEEKLY
     Route: 042
     Dates: start: 20170825, end: 20170901
  6. HYDROCORTISONE. [Concomitant]
     Active Substance: HYDROCORTISONE
     Indication: ADRENAL INSUFFICIENCY
     Dosage: 1.5 MG, 3X/DAY (EVERY 8 HOURS)
     Route: 048
     Dates: start: 20170901

REACTIONS (3)
  - Thrombocytopenia [Recovered/Resolved]
  - Oral herpes [Recovered/Resolved]
  - Anaemia [Recovered/Resolved]

NARRATIVE: CASE EVENT DATE: 20170908
